FAERS Safety Report 25997061 (Version 1)
Quarter: 2025Q4

REPORT INFORMATION
  Report Type: Spontaneous
  Country: GB (occurrence: GB)
  Receive Date: 20251104
  Receipt Date: 20251104
  Transmission Date: 20260117
  Serious: Yes (Other)
  Sender: GLAXOSMITHKLINE
  Company Number: GB-GSK-GB2025EME140756

PATIENT
  Age: 85 Year
  Sex: Female

DRUGS (2)
  1. NIRAPARIB [Suspect]
     Active Substance: NIRAPARIB
     Indication: Product used for unknown indication
     Dosage: 200 MG
  2. NIRAPARIB [Suspect]
     Active Substance: NIRAPARIB
     Dosage: 100 MG

REACTIONS (10)
  - Type 2 diabetes mellitus [Unknown]
  - Hypertension [Unknown]
  - Dyspnoea [Unknown]
  - Nausea [Unknown]
  - Asthenia [Unknown]
  - Lethargy [Unknown]
  - Disorientation [Unknown]
  - Haemoglobin abnormal [Recovered/Resolved]
  - Platelet disorder [Recovered/Resolved]
  - Neutrophil count abnormal [Recovered/Resolved]
